FAERS Safety Report 8577767-4 (Version None)
Quarter: 2012Q3

REPORT INFORMATION
  Report Type: 
  Country: None (occurrence: None)
  Receive Date: 20120808
  Receipt Date: 20120801
  Transmission Date: 20120928
  Serious: Yes (Death, Hospitalization, Other)
  Sender: FDA-Public Use
  Company Number: US-BIOGENIDEC-2012BI027560

PATIENT
  Age: 51 Year
  Sex: Male

DRUGS (21)
  1. VITAMIN D [Concomitant]
     Dates: start: 20110927
  2. AMPYRA [Concomitant]
     Route: 048
     Dates: start: 20120126
  3. RESVERATROL [Concomitant]
     Route: 048
     Dates: start: 20111122
  4. CHOLINE BITARTRATE [Concomitant]
     Dates: start: 20070803
  5. CLORAZEPATE DIPOTASSIUM [Concomitant]
     Route: 048
     Dates: start: 20111011
  6. CO Q-10 [Concomitant]
     Dates: start: 20111128
  7. LOVAZA [Concomitant]
     Dates: start: 20110803
  8. CALCIUM [Concomitant]
     Dates: start: 20110927
  9. PENNSAID TOPICAL SOLUTION 1.5%W/W [Concomitant]
     Indication: PAIN
     Route: 061
     Dates: start: 20120320
  10. SYNTHROID [Concomitant]
     Route: 048
     Dates: start: 20070803
  11. TYSABRI [Suspect]
     Indication: MULTIPLE SCLEROSIS
     Route: 042
     Dates: start: 20071207
  12. CYMBALTA [Concomitant]
     Route: 048
     Dates: start: 20120111
  13. FINASTERIDE [Concomitant]
     Route: 048
     Dates: start: 20111128
  14. LISINOPRIL [Concomitant]
     Route: 048
     Dates: start: 20070803
  15. POTASSIUM MAGNESIUM ASPARTAT [Concomitant]
     Dates: start: 20070803
  16. SELENIUM [Concomitant]
     Route: 048
     Dates: start: 20110927
  17. VITAMIN B-12 [Concomitant]
     Dates: start: 20110927
  18. ASPIRIN [Concomitant]
     Route: 048
     Dates: start: 20070803
  19. LYRICA [Concomitant]
     Route: 048
     Dates: start: 20111128
  20. IBUPROFEN [Concomitant]
     Route: 048
     Dates: start: 20070803
  21. ULTRAM [Concomitant]
     Route: 048
     Dates: start: 20110927

REACTIONS (3)
  - RASH GENERALISED [None]
  - HEPATITIS [None]
  - MULTIPLE SCLEROSIS [None]
